FAERS Safety Report 8667676 (Version 4)
Quarter: 2014Q2

REPORT INFORMATION
  Report Type: Spontaneous
  Country: US (occurrence: US)
  Receive Date: 20120717
  Receipt Date: 20140618
  Transmission Date: 20141212
  Serious: Yes (Hospitalization, Other)
  Sender: FDA-Public Use
  Company Number: US-009507513-1207USA004149

PATIENT
  Sex: Female
  Weight: 79.37 kg

DRUGS (3)
  1. NUVARING [Suspect]
     Indication: HOT FLUSH
     Dosage: UNK
     Route: 067
     Dates: start: 20100617, end: 201008
  2. NUVARING [Suspect]
     Indication: VULVOVAGINAL DRYNESS
  3. VENTOLIN (ALBUTEROL) [Concomitant]
     Indication: ASTHMA
     Dosage: UNK, PRN

REACTIONS (9)
  - Pulmonary embolism [Not Recovered/Not Resolved]
  - Deep vein thrombosis [Not Recovered/Not Resolved]
  - Hypertension [Unknown]
  - Sinus tachycardia [Unknown]
  - Palpitations [Unknown]
  - Chest pain [Unknown]
  - Muscle rupture [Unknown]
  - Abdominal pain lower [Unknown]
  - Off label use [Unknown]
